FAERS Safety Report 13494548 (Version 1)
Quarter: 2017Q2

REPORT INFORMATION
  Report Type: Spontaneous
  Country: US (occurrence: US)
  Receive Date: 20170428
  Receipt Date: 20170428
  Transmission Date: 20170830
  Serious: Yes (Other)
  Sender: FDA-Public Use
  Company Number: US-ROCHE-1920866

PATIENT
  Sex: Female
  Weight: 61.29 kg

DRUGS (2)
  1. RITUXAN [Suspect]
     Active Substance: RITUXIMAB
     Indication: MULTIPLE SCLEROSIS
     Route: 042
     Dates: start: 2007, end: 2009
  2. RITUXAN [Suspect]
     Active Substance: RITUXIMAB
     Dosage: INFUSED WHENEVER CD19 AND CD20 LEVELS WERE DOWN
     Route: 042
     Dates: start: 2005, end: 2007

REACTIONS (6)
  - Asthenia [Unknown]
  - Anaemia [Not Recovered/Not Resolved]
  - Hypoglobulinaemia [Not Recovered/Not Resolved]
  - Weight decreased [Unknown]
  - Fatigue [Unknown]
  - Immunodeficiency common variable [Not Recovered/Not Resolved]

NARRATIVE: CASE EVENT DATE: 2015
